FAERS Safety Report 24746291 (Version 2)
Quarter: 2025Q1

REPORT INFORMATION
  Report Type: Report from Study
  Country: US (occurrence: US)
  Receive Date: 20241218
  Receipt Date: 20250101
  Transmission Date: 20250408
  Serious: Yes (Other)
  Sender: ABBVIE
  Company Number: US-ABBVIE-6047397

PATIENT
  Age: 32 Year
  Sex: Female
  Weight: 88.45 kg

DRUGS (3)
  1. SKYRIZI [Suspect]
     Active Substance: RISANKIZUMAB-RZAA
     Indication: Psoriasis
     Route: 058
     Dates: start: 20230209
  2. Tacid [Concomitant]
     Indication: Probiotic therapy
  3. LORATADINE [Concomitant]
     Active Substance: LORATADINE
     Indication: Multiple allergies

REACTIONS (2)
  - Abscess [Recovered/Resolved]
  - Infected fistula [Recovered/Resolved]

NARRATIVE: CASE EVENT DATE: 20240601
